FAERS Safety Report 24044951 (Version 3)
Quarter: 2024Q3

REPORT INFORMATION
  Report Type: Spontaneous
  Country: JP (occurrence: JP)
  Receive Date: 20240703
  Receipt Date: 20240920
  Transmission Date: 20241016
  Serious: Yes (Death, Hospitalization)
  Sender: AKEBIA THERAPEUTICS
  Company Number: JP-JT-EVA202401009AKEBIAP

PATIENT
  Age: 66 Year
  Sex: Male

DRUGS (9)
  1. FERRIC CITRATE ANHYDROUS [Suspect]
     Active Substance: FERRIC CITRATE ANHYDROUS
     Indication: Hyperphosphataemia
     Dosage: UNK
     Route: 048
  2. CALCIUM POLYSTYRENE SULFONATE [Suspect]
     Active Substance: CALCIUM POLYSTYRENE SULFONATE
     Indication: Hyperkalaemia
     Dosage: UNK
     Route: 065
  3. CLONAZEPAM [Concomitant]
     Active Substance: CLONAZEPAM
     Indication: Product used for unknown indication
     Dosage: UNK
     Route: 065
  4. LANSOPRAZOLE [Concomitant]
     Active Substance: LANSOPRAZOLE
     Indication: Product used for unknown indication
     Dosage: UNK
     Route: 065
  5. NALFURAFINE HYDROCHLORIDE [Concomitant]
     Active Substance: NALFURAFINE HYDROCHLORIDE
     Indication: Product used for unknown indication
     Dosage: UNK
     Route: 065
  6. LANTHANUM CARBONATE [Concomitant]
     Active Substance: LANTHANUM CARBONATE
     Indication: Product used for unknown indication
     Dosage: UNK
     Route: 065
  7. PREGABALIN [Concomitant]
     Active Substance: PREGABALIN
     Indication: Product used for unknown indication
     Dosage: UNK
     Route: 065
  8. POLAPREZINC [Concomitant]
     Active Substance: POLAPREZINC
     Indication: Product used for unknown indication
     Dosage: UNK
     Route: 065
  9. LOXOPROFEN SODIUM DIHYDRATE [Concomitant]
     Active Substance: LOXOPROFEN SODIUM DIHYDRATE
     Indication: Product used for unknown indication
     Dosage: UNK
     Route: 065

REACTIONS (6)
  - Escherichia bacteraemia [Fatal]
  - Rectal ulcer haemorrhage [Fatal]
  - Endocarditis [Fatal]
  - Fall [Unknown]
  - Cerebral infarction [Unknown]
  - Constipation [Unknown]
